FAERS Safety Report 6743055-1 (Version None)
Quarter: 2010Q2

REPORT INFORMATION
  Report Type: 
  Country: None (occurrence: None)
  Receive Date: 20100527
  Receipt Date: 20100518
  Transmission Date: 20101027
  Serious: Yes (Other)
  Sender: FDA-Public Use
  Company Number: US-JNJFOC-20100507368

PATIENT
  Sex: Female

DRUGS (7)
  1. FENTANYL CITRATE [Suspect]
     Indication: PHANTOM PAIN
     Route: 062
  2. FENTANYL CITRATE [Suspect]
     Route: 062
  3. ACTOS [Concomitant]
     Indication: DIABETES MELLITUS
     Route: 048
  4. KERLONE [Concomitant]
     Indication: TACHYCARDIA
     Route: 048
  5. COUMADIN [Concomitant]
     Indication: COAGULOPATHY
     Route: 048
  6. OXYCONTIN [Concomitant]
     Indication: PAIN
     Route: 048
  7. LIDODERM [Concomitant]
     Indication: NEURALGIA
     Route: 062

REACTIONS (5)
  - EYE DISORDER [None]
  - INADEQUATE ANALGESIA [None]
  - MUSCLE TWITCHING [None]
  - RENAL FAILURE [None]
  - WRONG TECHNIQUE IN DRUG USAGE PROCESS [None]
